FAERS Safety Report 9156284 (Version 1)
Quarter: 2013Q1

REPORT INFORMATION
  Report Type: Spontaneous
  Country: US (occurrence: US)
  Receive Date: 20130109
  Receipt Date: 20130109
  Transmission Date: 20140127
  Serious: Yes (Other)
  Sender: FDA-Public Use
  Company Number: US-RB-048109-13

PATIENT
  Age: 66 Year
  Sex: Female

DRUGS (3)
  1. MUCINEX FAST MAX ADULT COLD + SINUS [Suspect]
     Indication: PRODUCT USED FOR UNKNOWN INDICATION
     Route: 048
     Dates: start: 20121219
  2. MUCINEX FAST MAX ADULT COLD + SINUS (GUAIFENESIN) [Suspect]
  3. MUCINEX FAST MAX ADULT COLD + SINUS [Suspect]

REACTIONS (5)
  - Pharyngeal oedema [Recovered/Resolved]
  - Dyspnoea [Recovered/Resolved]
  - Insomnia [Recovered/Resolved]
  - Headache [Recovered/Resolved]
  - Unevaluable event [Recovered/Resolved]
